FAERS Safety Report 5823274-9 (Version None)
Quarter: 2008Q3

REPORT INFORMATION
  Report Type: 
  Country: None (occurrence: None)
  Receive Date: 20080725
  Receipt Date: 20080723
  Transmission Date: 20090109
  Serious: Yes (Other)
  Sender: FDA-Public Use
  Company Number: US-BRISTOL-MYERS SQUIBB COMPANY-14207872

PATIENT
  Age: 37 Year
  Sex: Female

DRUGS (3)
  1. REYATAZ [Suspect]
     Indication: ANTIRETROVIRAL THERAPY
     Route: 048
  2. TRUVADA [Suspect]
     Indication: ANTIRETROVIRAL THERAPY
     Dosage: 1 DOSAGE FORM = 1 TABLET/DAY
  3. NORVIR [Suspect]
     Indication: ANTIRETROVIRAL THERAPY

REACTIONS (3)
  - ABORTION INDUCED [None]
  - CYTOGENETIC ABNORMALITY [None]
  - PREGNANCY [None]
